FAERS Safety Report 8612137 (Version 10)
Quarter: 2015Q1

REPORT INFORMATION
  Report Type: Report from Study
  Country: CA (occurrence: CA)
  Receive Date: 20120613
  Receipt Date: 20150121
  Transmission Date: 20150721
  Serious: Yes (Other)
  Sender: FDA-Public Use
  Company Number: PHHY2012CA044243

PATIENT
  Age: 52 Year
  Sex: Female

DRUGS (4)
  1. ZOMETA [Suspect]
     Active Substance: ZOLEDRONIC ACID
     Dosage: 4 MG, EVERY 3 MONTHS
     Route: 042
  2. ZOMETA [Suspect]
     Active Substance: ZOLEDRONIC ACID
     Dosage: 4 MG, EVERY 4 WEEKS
     Route: 042
     Dates: start: 20140606
  3. ZOMETA [Suspect]
     Active Substance: ZOLEDRONIC ACID
     Dosage: 4 MG, EVERY 4 WEEKS
     Route: 042
     Dates: start: 20140704
  4. ZOMETA [Suspect]
     Active Substance: ZOLEDRONIC ACID
     Indication: BREAST CANCER
     Dosage: 4 MG, EVERY 4 WEEKS
     Route: 042
     Dates: start: 20120515

REACTIONS (17)
  - Pyrexia [Not Recovered/Not Resolved]
  - Fatigue [Recovered/Resolved]
  - Malaise [Unknown]
  - Asthenia [Unknown]
  - Bone pain [Not Recovered/Not Resolved]
  - Vomiting [Unknown]
  - Influenza like illness [Recovered/Resolved]
  - Myalgia [Not Recovered/Not Resolved]
  - Heart rate decreased [Unknown]
  - Feeding disorder [Unknown]
  - Blood pressure decreased [Unknown]
  - Weight decreased [Unknown]
  - Headache [Unknown]
  - Nausea [Unknown]
  - Cystitis [Unknown]
  - Toothache [Unknown]
  - Pain in jaw [Unknown]

NARRATIVE: CASE EVENT DATE: 20120515
